FAERS Safety Report 6499898-5 (Version None)
Quarter: 2009Q4

REPORT INFORMATION
  Report Type: 
  Country: None (occurrence: None)
  Receive Date: 20091214
  Receipt Date: 20091214
  Transmission Date: 20100525
  Serious: Yes (Hospitalization)
  Sender: FDA-Public Use
  Company Number: None

PATIENT
  Sex: Male
  Weight: 11.65 kg

DRUGS (1)
  1. PROMETHAZINE [Suspect]
     Indication: VOMITING
     Dosage: 5 MG ONCE
     Dates: start: 20091210, end: 20091210

REACTIONS (2)
  - ELECTROENCEPHALOGRAM ABNORMAL [None]
  - UNRESPONSIVE TO STIMULI [None]
